FAERS Safety Report 9738709 (Version 1)
Quarter: 2013Q4

REPORT INFORMATION
  Report Type: Spontaneous
  Country: US (occurrence: US)
  Receive Date: 20131209
  Receipt Date: 20131209
  Transmission Date: 20140711
  Serious: Yes (Hospitalization)
  Sender: FDA-Public Use
  Company Number: US-BIOGENIDEC-2013BI116352

PATIENT
  Age: 52 Year
  Sex: Male

DRUGS (7)
  1. TECFIDERA [Suspect]
     Indication: MULTIPLE SCLEROSIS
     Route: 048
     Dates: start: 201304
  2. VALACYCLOVIR HCL [Concomitant]
  3. SIMVASTATIN [Concomitant]
  4. BUPROPION HCL [Concomitant]
  5. CLONAZEPAM [Concomitant]
  6. MILK THISTLE [Concomitant]
  7. PROVIGIL [Concomitant]

REACTIONS (1)
  - Myocardial infarction [Recovered/Resolved]
